FAERS Safety Report 9807168 (Version 3)
Quarter: 2014Q3

REPORT INFORMATION
  Report Type: Report from Study
  Country: US (occurrence: US)
  Receive Date: 20140110
  Receipt Date: 20140708
  Transmission Date: 20150326
  Serious: Yes (Hospitalization)
  Sender: FDA-Public Use
  Company Number: US-BIOGENIDEC-2014BI001361

PATIENT
  Age: 59 Year
  Sex: Male

DRUGS (2)
  1. AVONEX [Suspect]
     Active Substance: INTERFERON BETA-1A
     Indication: MULTIPLE SCLEROSIS
     Route: 030
     Dates: start: 19980101
  2. AVONEX [Suspect]
     Active Substance: INTERFERON BETA-1A
     Indication: MULTIPLE SCLEROSIS
     Route: 030

REACTIONS (15)
  - Hypotension [Unknown]
  - Back injury [Recovered/Resolved]
  - Optic neuritis [Recovered/Resolved]
  - Sigmoidoscopy [Recovered/Resolved]
  - Foot fracture [Recovered/Resolved]
  - Burnout syndrome [Not Recovered/Not Resolved]
  - Hyperhidrosis [Recovered/Resolved with Sequelae]
  - Feeling hot [Recovered/Resolved with Sequelae]
  - Fall [Recovered/Resolved]
  - Knee operation [Recovered/Resolved]
  - Paraesthesia [Recovered/Resolved with Sequelae]
  - Humerus fracture [Not Recovered/Not Resolved]
  - Loss of consciousness [Unknown]
  - Inappropriate schedule of drug administration [Unknown]
  - Hypertension [Recovered/Resolved]

NARRATIVE: CASE EVENT DATE: 2012
